FAERS Safety Report 4514238-6 (Version None)
Quarter: 2004Q4

REPORT INFORMATION
  Report Type: 
  Country: None (occurrence: None)
  Receive Date: 20041130
  Receipt Date: 20041120
  Transmission Date: 20050328
  Serious: Yes (Hospitalization)
  Sender: FDA-Public Use
  Company Number: DE-ABBOTT-04P-062-0281225-00

PATIENT
  Sex: Female
  Weight: 75 kg

DRUGS (2)
  1. AKINETON [Suspect]
     Indication: SUICIDE ATTEMPT
     Dosage: 9 X 2 OR 4 MG
     Route: 048
     Dates: start: 20041101, end: 20041101
  2. BISOPROLOL FUMARATE [Suspect]
     Indication: SUICIDE ATTEMPT
     Route: 048
     Dates: start: 20041101, end: 20041101

REACTIONS (3)
  - MULTIPLE DRUG OVERDOSE INTENTIONAL [None]
  - OVERDOSE [None]
  - SUICIDE ATTEMPT [None]
